FAERS Safety Report 5722087-6 (Version None)
Quarter: 2008Q2

REPORT INFORMATION
  Report Type: 
  Country: None (occurrence: None)
  Receive Date: 20080429
  Receipt Date: 20070515
  Transmission Date: 20081010
  Serious: No
  Sender: FDA-Public Use
  Company Number: US-ASTRAZENECA-2007UW12121

PATIENT
  Age: 75 Year
  Sex: Female

DRUGS (3)
  1. NEXIUM [Suspect]
     Route: 048
     Dates: end: 20070301
  2. NEXIUM [Suspect]
     Route: 048
     Dates: start: 20070301
  3. FOSAMAX [Concomitant]

REACTIONS (1)
  - STRESS FRACTURE [None]
